FAERS Safety Report 18847995 (Version 5)
Quarter: 2023Q2

REPORT INFORMATION
  Report Type: Report from Study
  Country: FR (occurrence: FR)
  Receive Date: 20210204
  Receipt Date: 20230619
  Transmission Date: 20230721
  Serious: Yes (Other)
  Sender: FDA-Public Use
  Company Number: FR-UNICANCER-2021000084

PATIENT
  Age: 55 Year
  Sex: Female
  Weight: 58 kg

DRUGS (10)
  1. FAM-TRASTUZUMAB DERUXTECAN-NXKI [Suspect]
     Active Substance: FAM-TRASTUZUMAB DERUXTECAN-NXKI
     Indication: HER2 positive breast cancer
     Dosage: 255 MG, CYCLIC,  (ONCE PER 21 DAY CYCLE)
     Route: 042
     Dates: start: 20200520, end: 20200520
  2. FAM-TRASTUZUMAB DERUXTECAN-NXKI [Suspect]
     Active Substance: FAM-TRASTUZUMAB DERUXTECAN-NXKI
     Dosage: 255 MG, CYCLIC, CYCLE 2 -11 (ONCE PER 21 DAY CYCLE)
     Route: 042
     Dates: start: 2020, end: 2020
  3. FAM-TRASTUZUMAB DERUXTECAN-NXKI [Suspect]
     Active Substance: FAM-TRASTUZUMAB DERUXTECAN-NXKI
     Dosage: 255 MG, CYCLIC,  (ONCE PER 21 DAY CYCLE)
     Route: 042
     Dates: start: 20201223, end: 20201223
  4. FAM-TRASTUZUMAB DERUXTECAN-NXKI [Suspect]
     Active Substance: FAM-TRASTUZUMAB DERUXTECAN-NXKI
     Dosage: 4.4 MG/KG, CYCLIC, (ONCE PER 21 DAY CYCLE)
     Route: 042
     Dates: start: 20210113, end: 20210113
  5. METFORMINE                         /00082701/ [Concomitant]
     Indication: Diabetes mellitus
     Dosage: 1 G, BID
     Route: 048
     Dates: start: 201908
  6. DOLIPRAN                           /00020001/ [Concomitant]
     Indication: Back pain
     Dosage: 1 DF, AS NEEDED
     Route: 048
     Dates: start: 202001
  7. DOLIPRAN                           /00020001/ [Concomitant]
     Indication: Breast pain
  8. GAVISCON                           /00237601/ [Concomitant]
     Indication: Gastrooesophageal reflux disease
     Dosage: 1 DF, QD
     Dates: start: 20201002
  9. PRIMPERAN [Concomitant]
     Active Substance: METOCLOPRAMIDE HYDROCHLORIDE
     Indication: Gastrooesophageal reflux disease
     Dosage: 1 DF, AS NEEDED
     Route: 048
     Dates: start: 20201002
  10. OMEPRAZOLE [Concomitant]
     Active Substance: OMEPRAZOLE
     Indication: Gastrooesophageal reflux disease
     Dosage: 1 DF, AS NEEDED
     Dates: start: 20201223

REACTIONS (1)
  - Electrocardiogram QT prolonged [Not Recovered/Not Resolved]

NARRATIVE: CASE EVENT DATE: 20210113
